FAERS Safety Report 19888624 (Version 4)
Quarter: 2021Q4

REPORT INFORMATION
  Report Type: Spontaneous
  Country: US (occurrence: US)
  Receive Date: 20210927
  Receipt Date: 20211126
  Transmission Date: 20220303
  Serious: Yes (Other)
  Sender: FDA-Public Use
  Company Number: US-BAYER-2021-214002

PATIENT
  Sex: Male

DRUGS (2)
  1. KOGENATE FS [Suspect]
     Active Substance: ANTIHEMOPHILIC FACTOR, HUMAN RECOMBINANT
     Dosage: 3035 U
  2. KOGENATE FS [Suspect]
     Active Substance: ANTIHEMOPHILIC FACTOR, HUMAN RECOMBINANT
     Dosage: TREATMENT FOR RIGHT ELBOW MUSCLE BLEED USED ABOUT 13 DOSES TOTAL

REACTIONS (7)
  - Muscle haemorrhage [None]
  - Haemarthrosis [None]
  - Limb injury [None]
  - Haemarthrosis [None]
  - Haemarthrosis [None]
  - Epistaxis [None]
  - Haemarthrosis [None]

NARRATIVE: CASE EVENT DATE: 20210101
